FAERS Safety Report 6210801-5 (Version None)
Quarter: 2009Q2

REPORT INFORMATION
  Report Type: 
  Country: None (occurrence: None)
  Receive Date: 20090601
  Receipt Date: 20090522
  Transmission Date: 20091009
  Serious: Yes (Other)
  Sender: FDA-Public Use
  Company Number: US-PFIZER INC-2009220529

PATIENT

DRUGS (3)
  1. FLUCONAZOLE [Suspect]
     Indication: CRYPTOCOCCOSIS
  2. AMPHOTERICIN B [Suspect]
  3. WARFARIN [Suspect]

REACTIONS (1)
  - SUBDURAL HAEMATOMA [None]
